FAERS Safety Report 9062965 (Version 1)
Quarter: 2013Q1

REPORT INFORMATION
  Report Type: Report from Study
  Country: US (occurrence: US)
  Receive Date: 20130129
  Receipt Date: 20130129
  Transmission Date: 20140127
  Serious: No
  Sender: FDA-Public Use
  Company Number: US-ABBOTT-12P-163-0944550-00

PATIENT
  Age: 56 Year
  Sex: Female

DRUGS (6)
  1. HUMIRA 40 MG/0.8 ML PEN [Suspect]
     Indication: PSORIASIS
     Dosage: LOADING DOSE
     Dates: start: 20120425, end: 20120425
  2. HUMIRA 40 MG/0.8 ML PEN [Suspect]
     Dates: start: 20120502, end: 20120502
  3. HUMIRA 40 MG/0.8 ML PEN [Suspect]
     Dates: end: 20120516
  4. UNKNOWN STOMACH MEDICATIONS [Concomitant]
     Indication: PAIN
  5. UNKNOWN PAIN MEDICATIONS [Concomitant]
     Indication: GASTRIC DISORDER
  6. XANAX [Concomitant]
     Indication: PRODUCT USED FOR UNKNOWN INDICATION

REACTIONS (5)
  - Chest discomfort [Not Recovered/Not Resolved]
  - Dyspnoea [Not Recovered/Not Resolved]
  - Arthralgia [Not Recovered/Not Resolved]
  - Asthenia [Not Recovered/Not Resolved]
  - Gait disturbance [Not Recovered/Not Resolved]
